FAERS Safety Report 13798343 (Version 1)
Quarter: 2017Q3

REPORT INFORMATION
  Report Type: Spontaneous
  Country: FR (occurrence: FR)
  Receive Date: 20170727
  Receipt Date: 20170727
  Transmission Date: 20171127
  Serious: Yes (Hospitalization)
  Sender: FDA-Public Use
  Company Number: FR-FRESENIUS KABI-FK201706306

PATIENT
  Age: 56 Year
  Sex: Female

DRUGS (9)
  1. TAZOCILIN [Suspect]
     Active Substance: PIPERACILLIN SODIUM\TAZOBACTAM SODIUM
     Indication: PANCYTOPENIA
     Route: 042
  2. DAUNORUBICIN [Concomitant]
     Active Substance: DAUNORUBICIN
     Indication: CHEMOTHERAPY
     Route: 042
  3. VANCOMYCIN (MANUFACTURER UNKNOWN) [Suspect]
     Active Substance: VANCOMYCIN
     Indication: PYREXIA
     Route: 042
  4. CASPOFUNGIN [Concomitant]
     Active Substance: CASPOFUNGIN
     Indication: PANCYTOPENIA
     Route: 065
  5. VANCOMYCIN (MANUFACTURER UNKNOWN) [Suspect]
     Active Substance: VANCOMYCIN
     Indication: PANCYTOPENIA
     Route: 042
  6. CYTARABIN [Concomitant]
     Active Substance: CYTARABINE
     Indication: CHEMOTHERAPY
     Route: 042
  7. GEMTUZUMAB [Concomitant]
     Active Substance: GEMTUZUMAB OZOGAMICIN
     Indication: CHEMOTHERAPY
     Route: 042
  8. TAZOCILIN [Suspect]
     Active Substance: PIPERACILLIN SODIUM\TAZOBACTAM SODIUM
     Indication: PYREXIA
  9. CASPOFUNGIN [Concomitant]
     Active Substance: CASPOFUNGIN
     Indication: PYREXIA

REACTIONS (2)
  - Renal tubular necrosis [Recovered/Resolved]
  - Acute kidney injury [Recovered/Resolved]
